FAERS Safety Report 8571974-2 (Version None)
Quarter: 2012Q2

REPORT INFORMATION
  Report Type: 
  Country: None (occurrence: None)
  Receive Date: 20120423
  Receipt Date: 20101020
  Transmission Date: 20120825
  Serious: Yes (Other)
  Sender: FDA-Public Use
  Company Number: PHHY2010US56103

PATIENT
  Age: 7 Year
  Sex: Male
  Weight: 21.1 kg

DRUGS (8)
  1. EXJADE [Suspect]
     Indication: IRON OVERLOAD
     Dosage: 625 MG, DAILY, ORAL; 625 MG, DAILY, ORAL; 375 MG DAILY; 1025 MG
     Route: 048
     Dates: start: 20100415, end: 20100821
  2. EXJADE [Suspect]
     Indication: THALASSAEMIA
     Dosage: 625 MG, DAILY, ORAL; 625 MG, DAILY, ORAL; 375 MG DAILY; 1025 MG
     Route: 048
     Dates: start: 20100415, end: 20100821
  3. EXJADE [Suspect]
     Indication: IRON OVERLOAD
     Dosage: 625 MG, DAILY, ORAL; 625 MG, DAILY, ORAL; 375 MG DAILY; 1025 MG
     Route: 048
     Dates: start: 20060502
  4. EXJADE [Suspect]
     Indication: THALASSAEMIA
     Dosage: 625 MG, DAILY, ORAL; 625 MG, DAILY, ORAL; 375 MG DAILY; 1025 MG
     Route: 048
     Dates: start: 20060502
  5. EXJADE [Suspect]
     Indication: IRON OVERLOAD
     Dosage: 625 MG, DAILY, ORAL; 625 MG, DAILY, ORAL; 375 MG DAILY; 1025 MG
     Route: 048
     Dates: start: 20100820
  6. EXJADE [Suspect]
     Indication: THALASSAEMIA
     Dosage: 625 MG, DAILY, ORAL; 625 MG, DAILY, ORAL; 375 MG DAILY; 1025 MG
     Route: 048
     Dates: start: 20100820
  7. EXJADE [Suspect]
     Indication: IRON OVERLOAD
     Dosage: 625 MG, DAILY, ORAL; 625 MG, DAILY, ORAL; 375 MG DAILY; 1025 MG
     Route: 048
     Dates: start: 20100920
  8. EXJADE [Suspect]
     Indication: THALASSAEMIA
     Dosage: 625 MG, DAILY, ORAL; 625 MG, DAILY, ORAL; 375 MG DAILY; 1025 MG
     Route: 048
     Dates: start: 20100920

REACTIONS (3)
  - URINE PROTEIN/CREATININE RATIO INCREASED [None]
  - PROTEIN URINE PRESENT [None]
  - URINE OUTPUT INCREASED [None]
